FAERS Safety Report 18740847 (Version 1)
Quarter: 2021Q1

REPORT INFORMATION
  Report Type: Spontaneous
  Country: US (occurrence: US)
  Receive Date: 20210114
  Receipt Date: 20210114
  Transmission Date: 20210419
  Serious: Yes (Other)
  Sender: FDA-Public Use
  Company Number: US-TEVA-2019-US-994522

PATIENT
  Sex: Male

DRUGS (2)
  1. TESTOSTERONE. [Suspect]
     Active Substance: TESTOSTERONE
     Dosage: 2.5G POUCH
     Route: 065
  2. TESTOSTERONE. [Suspect]
     Active Substance: TESTOSTERONE
     Dosage: GEL 1% PUMP
     Route: 065

REACTIONS (11)
  - Musculoskeletal disorder [Unknown]
  - Suspected counterfeit product [Unknown]
  - Product substitution issue [Unknown]
  - Gynaecomastia [Unknown]
  - Asthenia [Unknown]
  - Skin texture abnormal [Unknown]
  - Hip deformity [Unknown]
  - Dysphonia [Unknown]
  - Suspected product tampering [Unknown]
  - Erectile dysfunction [Unknown]
  - Muscle swelling [Unknown]
